FAERS Safety Report 13988738 (Version 2)
Quarter: 2017Q4

REPORT INFORMATION
  Report Type: Report from Study
  Country: US (occurrence: US)
  Receive Date: 20170919
  Receipt Date: 20171003
  Transmission Date: 20180321
  Serious: Yes (Death)
  Sender: FDA-Public Use
  Company Number: US-VIFOR (INTERNATIONAL) INC.-VIT-2017-09526

PATIENT
  Age: 55 Year
  Sex: Female

DRUGS (19)
  1. ZOCOR [Concomitant]
     Active Substance: SIMVASTATIN
  2. IRON [Concomitant]
     Active Substance: IRON
  3. FERROUS SULFATE. [Concomitant]
     Active Substance: FERROUS SULFATE
  4. SODIUM POLYSTYRENE SULFONATE. [Concomitant]
     Active Substance: SODIUM POLYSTYRENE SULFONATE
  5. ECONAZOLE [Concomitant]
     Active Substance: ECONAZOLE
  6. CLARITIN [Concomitant]
     Active Substance: LORATADINE
  7. CALCIUM GLUCONATE. [Concomitant]
     Active Substance: CALCIUM GLUCONATE
  8. ACETYLSALICYLIC ACID [Concomitant]
     Active Substance: ASPIRIN
  9. ERGOCALCIFEROL. [Concomitant]
     Active Substance: ERGOCALCIFEROL
  10. MACROBID [Concomitant]
     Active Substance: NITROFURANTOIN\NITROFURANTOIN MONOHYDRATE
  11. DOCUSATE SODIUM. [Concomitant]
     Active Substance: DOCUSATE SODIUM
  12. VELTASSA [Suspect]
     Active Substance: PATIROMER
     Indication: HYPERKALAEMIA
     Route: 048
     Dates: start: 20161019, end: 20170807
  13. KEPPRA [Concomitant]
     Active Substance: LEVETIRACETAM
  14. TENORMIN [Concomitant]
     Active Substance: ATENOLOL
  15. LEVOTHYROXIN [Concomitant]
     Active Substance: LEVOTHYROXINE
  16. HYDRALAZINE [Concomitant]
     Active Substance: HYDRALAZINE HYDROCHLORIDE
  17. OMEPRAZOLE. [Concomitant]
     Active Substance: OMEPRAZOLE
  18. FOSAMAX [Concomitant]
     Active Substance: ALENDRONATE SODIUM
  19. HYDROCHLOROTHIAZIDE. [Concomitant]
     Active Substance: HYDROCHLOROTHIAZIDE

REACTIONS (1)
  - Death [Fatal]

NARRATIVE: CASE EVENT DATE: 20170807
